FAERS Safety Report 16664284 (Version 2)
Quarter: 2025Q3

REPORT INFORMATION
  Report Type: Spontaneous
  Country: EU (occurrence: EU)
  Receive Date: 20190802
  Receipt Date: 20250829
  Transmission Date: 20251021
  Serious: Yes (Death, Other)
  Sender: MYLAN
  Company Number: None

PATIENT
  Age: 15 Year
  Sex: Female

DRUGS (44)
  1. METHOTREXATE [Suspect]
     Active Substance: METHOTREXATE
     Indication: Acute lymphocytic leukaemia
  2. METHOTREXATE [Suspect]
     Active Substance: METHOTREXATE
     Route: 037
  3. METHOTREXATE [Suspect]
     Active Substance: METHOTREXATE
     Route: 037
  4. METHOTREXATE [Suspect]
     Active Substance: METHOTREXATE
  5. METHOTREXATE [Suspect]
     Active Substance: METHOTREXATE
     Indication: Acute lymphocytic leukaemia
  6. METHOTREXATE [Suspect]
     Active Substance: METHOTREXATE
     Route: 042
  7. METHOTREXATE [Suspect]
     Active Substance: METHOTREXATE
     Route: 042
  8. METHOTREXATE [Suspect]
     Active Substance: METHOTREXATE
  9. CORTISONE [Suspect]
     Active Substance: CORTISONE
     Indication: Acute lymphocytic leukaemia
  10. CORTISONE [Suspect]
     Active Substance: CORTISONE
     Route: 065
  11. CORTISONE [Suspect]
     Active Substance: CORTISONE
     Route: 065
  12. CORTISONE [Suspect]
     Active Substance: CORTISONE
  13. DOXORUBICIN [Suspect]
     Active Substance: DOXORUBICIN
     Indication: Acute lymphocytic leukaemia
  14. DOXORUBICIN [Suspect]
     Active Substance: DOXORUBICIN
     Route: 065
  15. DOXORUBICIN [Suspect]
     Active Substance: DOXORUBICIN
     Route: 065
  16. DOXORUBICIN [Suspect]
     Active Substance: DOXORUBICIN
  17. ASPARAGINASE [Suspect]
     Active Substance: ASPARAGINASE
     Indication: Acute lymphocytic leukaemia
  18. ASPARAGINASE [Suspect]
     Active Substance: ASPARAGINASE
     Route: 065
  19. ASPARAGINASE [Suspect]
     Active Substance: ASPARAGINASE
     Route: 065
  20. ASPARAGINASE [Suspect]
     Active Substance: ASPARAGINASE
  21. CYTARABINE [Suspect]
     Active Substance: CYTARABINE
     Indication: Acute lymphocytic leukaemia
  22. CYTARABINE [Suspect]
     Active Substance: CYTARABINE
     Route: 065
  23. CYTARABINE [Suspect]
     Active Substance: CYTARABINE
     Route: 065
  24. CYTARABINE [Suspect]
     Active Substance: CYTARABINE
  25. VINCRISTINE [Suspect]
     Active Substance: VINCRISTINE
     Indication: Acute lymphocytic leukaemia
  26. VINCRISTINE [Suspect]
     Active Substance: VINCRISTINE
     Route: 065
  27. VINCRISTINE [Suspect]
     Active Substance: VINCRISTINE
     Route: 065
  28. VINCRISTINE [Suspect]
     Active Substance: VINCRISTINE
  29. THIOGUANINE [Suspect]
     Active Substance: THIOGUANINE
     Indication: Acute lymphocytic leukaemia
  30. THIOGUANINE [Suspect]
     Active Substance: THIOGUANINE
     Route: 065
  31. THIOGUANINE [Suspect]
     Active Substance: THIOGUANINE
     Route: 065
  32. THIOGUANINE [Suspect]
     Active Substance: THIOGUANINE
  33. CYCLOPHOSPHAMIDE [Suspect]
     Active Substance: CYCLOPHOSPHAMIDE
     Indication: Acute lymphocytic leukaemia
  34. CYCLOPHOSPHAMIDE [Suspect]
     Active Substance: CYCLOPHOSPHAMIDE
     Route: 065
  35. CYCLOPHOSPHAMIDE [Suspect]
     Active Substance: CYCLOPHOSPHAMIDE
     Route: 065
  36. CYCLOPHOSPHAMIDE [Suspect]
     Active Substance: CYCLOPHOSPHAMIDE
  37. DAUNORUBICIN [Suspect]
     Active Substance: DAUNORUBICIN
     Indication: Acute lymphocytic leukaemia
  38. DAUNORUBICIN [Suspect]
     Active Substance: DAUNORUBICIN
     Route: 065
  39. DAUNORUBICIN [Suspect]
     Active Substance: DAUNORUBICIN
     Route: 065
  40. DAUNORUBICIN [Suspect]
     Active Substance: DAUNORUBICIN
  41. MERCAPTOPURINE [Suspect]
     Active Substance: MERCAPTOPURINE
     Indication: Acute lymphocytic leukaemia
  42. MERCAPTOPURINE [Suspect]
     Active Substance: MERCAPTOPURINE
     Route: 065
  43. MERCAPTOPURINE [Suspect]
     Active Substance: MERCAPTOPURINE
     Route: 065
  44. MERCAPTOPURINE [Suspect]
     Active Substance: MERCAPTOPURINE

REACTIONS (2)
  - Glioblastoma multiforme [Fatal]
  - Second primary malignancy [Fatal]
